FAERS Safety Report 18768127 (Version 1)
Quarter: 2021Q1

REPORT INFORMATION
  Report Type: Report from Study
  Country: US (occurrence: US)
  Receive Date: 20210121
  Receipt Date: 20210121
  Transmission Date: 20210419
  Serious: Yes (Other)
  Sender: FDA-Public Use
  Company Number: US-BIOCRYST PHARMACEUTICALS, INC.-2020BCR00098

PATIENT
  Age: 45 Year
  Sex: Male
  Weight: 88.44 kg

DRUGS (10)
  1. ORLADEYO [Suspect]
     Active Substance: BEROTRALSTAT HYDROCHLORIDE
     Indication: HEREDITARY ANGIOEDEMA
     Dosage: AS PRESCRIBED
     Dates: start: 20201219, end: 20201226
  2. TAKHZYRO [Concomitant]
     Active Substance: LANADELUMAB-FLYO
  3. TRANEXAMIC ACID. [Concomitant]
     Active Substance: TRANEXAMIC ACID
  4. SIMVASTATIN. [Concomitant]
     Active Substance: SIMVASTATIN
  5. ORLADEYO [Suspect]
     Active Substance: BEROTRALSTAT HYDROCHLORIDE
     Dosage: AS PRESCRIBED
     Dates: start: 20210104, end: 20210105
  6. ZYRTEC [Concomitant]
     Active Substance: CETIRIZINE HYDROCHLORIDE
  7. PANTOPRAZOLE [Concomitant]
     Active Substance: PANTOPRAZOLE
  8. ASPIRIN. [Concomitant]
     Active Substance: ASPIRIN
  9. FIRAZYR [Concomitant]
     Active Substance: ICATIBANT ACETATE
     Dosage: UNK, AS NEEDED
  10. TESTOSTERONE. [Concomitant]
     Active Substance: TESTOSTERONE

REACTIONS (6)
  - Somnolence [Unknown]
  - Swelling [Unknown]
  - Diarrhoea [Recovered/Resolved]
  - Gastrointestinal disorder [Unknown]
  - Swollen tongue [Unknown]
  - Abdominal pain [Recovered/Resolved]

NARRATIVE: CASE EVENT DATE: 20201219
